FAERS Safety Report 24726766 (Version 1)
Quarter: 2024Q4

REPORT INFORMATION
  Report Type: Spontaneous
  Country: CN (occurrence: CN)
  Receive Date: 20241212
  Receipt Date: 20241212
  Transmission Date: 20250114
  Serious: Yes (Other)
  Sender: ABBVIE
  Company Number: CN-ABBVIE-6039604

PATIENT
  Age: 79 Year
  Sex: Male
  Weight: 80 kg

DRUGS (3)
  1. VENETOCLAX [Suspect]
     Active Substance: VENETOCLAX
     Indication: Neoplasm prophylaxis
     Dosage: 200 MILLIGRAM
     Route: 048
     Dates: start: 20241107, end: 20241113
  2. WATER FOR INJECTION [Concomitant]
     Active Substance: WATER
     Indication: Vehicle solution use
     Dosage: 4 MILLILITER
     Route: 058
     Dates: start: 20241107, end: 20241113
  3. AZACITIDINE [Suspect]
     Active Substance: AZACITIDINE
     Indication: Neoplasm prophylaxis
     Dosage: 100 MILLIGRAM
     Route: 058
     Dates: start: 20241107, end: 20241113

REACTIONS (4)
  - Alanine aminotransferase increased [Recovering/Resolving]
  - Blood creatinine increased [Recovering/Resolving]
  - Off label use [Unknown]
  - Aspartate aminotransferase [Recovering/Resolving]

NARRATIVE: CASE EVENT DATE: 20240101
